FAERS Safety Report 14900203 (Version 1)
Quarter: 2018Q2

REPORT INFORMATION
  Report Type: Report from Study
  Country: US (occurrence: US)
  Receive Date: 20180516
  Receipt Date: 20180516
  Transmission Date: 20180711
  Serious: Yes (Other)
  Sender: FDA-Public Use
  Company Number: US-ROCHE-2122806

PATIENT
  Sex: Female
  Weight: 59.02 kg

DRUGS (1)
  1. TAMIFLU [Suspect]
     Active Substance: OSELTAMIVIR PHOSPHATE
     Indication: INFLUENZA
     Route: 065

REACTIONS (6)
  - Hypokinesia [Unknown]
  - Hemiparesis [Unknown]
  - Pain in extremity [Unknown]
  - Spinal osteoarthritis [Unknown]
  - Insomnia [Unknown]
  - Thyroid neoplasm [Unknown]
